FAERS Safety Report 4834950-9 (Version None)
Quarter: 2005Q4

REPORT INFORMATION
  Report Type: 
  Country: None (occurrence: None)
  Receive Date: 20051122
  Receipt Date: 20051114
  Transmission Date: 20060501
  Serious: Yes (Disabling, Other)
  Sender: FDA-Public Use
  Company Number: US-JNJFOC-20050500070

PATIENT
  Sex: Male

DRUGS (1)
  1. RISPERDAL [Suspect]
     Indication: DRUG USE FOR UNKNOWN INDICATION
     Dates: start: 19960101, end: 20030201

REACTIONS (4)
  - ANXIETY [None]
  - DIABETES MELLITUS INSULIN-DEPENDENT [None]
  - EMOTIONAL DISTRESS [None]
  - PAIN [None]
